FAERS Safety Report 4621687-4 (Version None)
Quarter: 2005Q1

REPORT INFORMATION
  Report Type: 
  Country: None (occurrence: None)
  Receive Date: 20050329
  Receipt Date: 20050317
  Transmission Date: 20050727
  Serious: Yes (Death, Other)
  Sender: FDA-Public Use
  Company Number: JP-JNJFOC-20050200001

PATIENT
  Sex: Female

DRUGS (5)
  1. LEUSTATIN [Suspect]
     Route: 041
  2. LEUSTATIN [Suspect]
     Indication: MANTLE CELL LYMPHOMA
     Route: 041
  3. FUROSEMIDE [Concomitant]
     Indication: CARDIAC FAILURE
     Route: 049
  4. SPIRONOLACTONE [Concomitant]
     Indication: CARDIAC FAILURE
     Route: 049
  5. ALLOPURINOL [Concomitant]
     Indication: HYPERURICAEMIA
     Route: 049

REACTIONS (4)
  - ANAEMIA [None]
  - LEUKOPENIA [None]
  - RENAL FAILURE ACUTE [None]
  - THROMBOCYTOPENIA [None]
